FAERS Safety Report 8830067 (Version 1)
Quarter: 2012Q4

REPORT INFORMATION
  Report Type: 
  Country: US (occurrence: US)
  Receive Date: 20121008
  Receipt Date: 20121008
  Transmission Date: 20130627
  Serious: Yes (Other)
  Sender: FDA-Public Use
  Company Number: PHEH2012US003545

PATIENT
  Sex: Male

DRUGS (9)
  1. GILENYA [Suspect]
     Indication: MULTIPLE SCLEROSIS
     Dosage: 0.5 mg, QD
     Route: 048
     Dates: start: 2011
  2. OXYCODONE [Concomitant]
     Dosage: UNK UKN, UNK
  3. BACLOFEN [Concomitant]
     Dosage: 20 mg, UNK
  4. LISINOPRIL [Concomitant]
     Dosage: UNK UKN, UNK
  5. SERTRALINE [Concomitant]
     Dosage: 200 mg, UNK
  6. ZANAFLEX [Concomitant]
     Dosage: 4 mg, UNK
  7. PRAVASTATIN [Concomitant]
     Dosage: UNK UKN, UNK
  8. FLOMAX [Concomitant]
     Dosage: UNK UKN, UNK
  9. NOVOLIN [Concomitant]
     Dosage: UNK UKN, UNK

REACTIONS (3)
  - Pain [Not Recovered/Not Resolved]
  - Heart rate decreased [Not Recovered/Not Resolved]
  - Multiple sclerosis relapse [Not Recovered/Not Resolved]
